FAERS Safety Report 8347738-1 (Version None)
Quarter: 2012Q2

REPORT INFORMATION
  Report Type: 
  Country: None (occurrence: None)
  Receive Date: 20120509
  Receipt Date: 20120427
  Transmission Date: 20120825
  Serious: Yes (Hospitalization, Disabling)
  Sender: FDA-Public Use
  Company Number: GB-TEVA-329619ISR

PATIENT
  Age: 53 Year
  Sex: Female
  Weight: 41 kg

DRUGS (1)
  1. SERTRALINE HYDROCHLORIDE [Suspect]
     Dates: start: 20111129, end: 20111227

REACTIONS (1)
  - DUODENAL ULCER PERFORATION [None]
